FAERS Safety Report 6569082-5 (Version None)
Quarter: 2010Q1

REPORT INFORMATION
  Report Type: 
  Country: None (occurrence: None)
  Receive Date: 20100203
  Receipt Date: 20100128
  Transmission Date: 20100710
  Serious: Yes (Life-Threatening, Hospitalization, Other)
  Sender: FDA-Public Use
  Company Number: CA-PFIZER INC-2009309152

PATIENT
  Age: 72 Year
  Sex: Male
  Weight: 120 kg

DRUGS (11)
  1. SALAZOPYRIN [Suspect]
     Indication: COLITIS ULCERATIVE
     Dosage: 500 MG, 3X/DAY
     Route: 048
     Dates: end: 20091207
  2. AMLODIPINE BESILATE [Concomitant]
  3. LIPITOR [Concomitant]
     Indication: DYSLIPIDAEMIA
     Dosage: 10 MG, 1X/DAY
  4. DOCUSATE SODIUM [Concomitant]
  5. HEPARIN SODIUM [Concomitant]
     Route: 058
  6. LORAZEPAM [Concomitant]
  7. METOPROLOL [Concomitant]
  8. SENNOSIDES [Concomitant]
  9. ASAPHEN [Concomitant]
     Indication: HYPERTENSION
     Dosage: 80 MG, 1X/DAY
  10. ATENOLOL [Concomitant]
     Indication: HYPERTENSION
     Dosage: 50 MG, 1X/DAY
  11. COVERSYL [Concomitant]
     Indication: HYPERTENSION
     Dosage: 2 MG, 1X/DAY

REACTIONS (2)
  - ANGINA UNSTABLE [None]
  - PANCYTOPENIA [None]
